FAERS Safety Report 15218493 (Version 2)
Quarter: 2018Q4

REPORT INFORMATION
  Report Type: Spontaneous
  Country: US (occurrence: US)
  Receive Date: 20180730
  Receipt Date: 20181007
  Transmission Date: 20190204
  Serious: Yes (Death, Hospitalization, Disabling, Other)
  Sender: FDA-Public Use
  Company Number: US-009507513-1807USA012544

PATIENT
  Sex: Male
  Weight: 97.05 kg

DRUGS (1)
  1. JANUVIA [Suspect]
     Active Substance: SITAGLIPTIN PHOSPHATE
     Indication: TYPE 2 DIABETES MELLITUS
     Dosage: 100 MG, QD
     Route: 048
     Dates: start: 201107, end: 201210

REACTIONS (12)
  - Cholangitis [Unknown]
  - Sepsis [Unknown]
  - Liver abscess [Not Recovered/Not Resolved]
  - Gallbladder rupture [Unknown]
  - Postoperative ileus [Recovered/Resolved]
  - Hyperglycaemia [Unknown]
  - Gallbladder abscess [Not Recovered/Not Resolved]
  - Disability [Unknown]
  - Localised infection [Unknown]
  - Pancreatic carcinoma metastatic [Fatal]
  - Alpha haemolytic streptococcal infection [Unknown]
  - Leukocytosis [Unknown]

NARRATIVE: CASE EVENT DATE: 201410
